FAERS Safety Report 13303953 (Version 1)
Quarter: 2017Q1

REPORT INFORMATION
  Report Type: Not Available
  Country: US (occurrence: US)
  Receive Date: 20170307
  Receipt Date: 20170307
  Transmission Date: 20170428
  Serious: Yes (Other)
  Sender: FDA-Public Use
  Company Number: US--2017-US-000025

PATIENT
  Age: 76 Year
  Sex: Male

DRUGS (11)
  1. ROPINIROLE. [Concomitant]
     Active Substance: ROPINIROLE
     Indication: PRODUCT USED FOR UNKNOWN INDICATION
     Dosage: 1 MG EVERY NIGHT
     Dates: start: 201310
  2. DISSECTED THYROID [Concomitant]
     Indication: PRODUCT USED FOR UNKNOWN INDICATION
     Dosage: 1 GRAIN EVERY MORNING
     Dates: start: 201310
  3. FLUTICASONE NASAL SPRAY [Concomitant]
     Active Substance: FLUTICASONE
     Indication: PRODUCT USED FOR UNKNOWN INDICATION
     Dosage: 50-LG SPRAY IN BOTH NOSTRILS ONCE PERDAY
     Dates: start: 201310
  4. FUROSEMIDE. [Concomitant]
     Active Substance: FUROSEMIDE
     Indication: OEDEMA
     Dosage: 20 MG ONCE PER DAY
     Dates: start: 201310
  5. MEMANTINE. [Concomitant]
     Active Substance: MEMANTINE
     Indication: PRODUCT USED FOR UNKNOWN INDICATION
     Dosage: 28 MG EXTENDED RELEASE ONCE PER DAY
     Dates: start: 201310
  6. BACLOFEN. [Concomitant]
     Active Substance: BACLOFEN
     Indication: HICCUPS
     Dosage: 5 MG EVERY 8 HRS AS NEEDED
     Dates: start: 201310
  7. METOCLOPRAMIDE. [Concomitant]
     Active Substance: METOCLOPRAMIDE
     Indication: HICCUPS
     Dosage: 20 MG ONCE PER DAY
     Dates: start: 201310
  8. AMITRIPTYLINE [Concomitant]
     Active Substance: AMITRIPTYLINE
     Indication: PRODUCT USED FOR UNKNOWN INDICATION
     Dosage: 25 MG ONCE PER NIGHT
     Dates: start: 201310
  9. DONEPEZIL HYDROCHLORIDE BRAND UNSPECIFIED (VIVIMED) [Suspect]
     Active Substance: DONEPEZIL HYDROCHLORIDE
     Indication: PRODUCT USED FOR UNKNOWN INDICATION
     Dosage: 5 MG AT BEDTIME
     Dates: start: 2011
  10. OMEPRAZOLE. [Concomitant]
     Active Substance: OMEPRAZOLE
     Indication: PRODUCT USED FOR UNKNOWN INDICATION
     Dosage: 20 MG TWICE PER DAY
     Dates: start: 201310
  11. QUETIAPINE. [Concomitant]
     Active Substance: QUETIAPINE
     Indication: ABNORMAL BEHAVIOUR
     Dosage: 25 MG TWICE PER DAY
     Dates: start: 201310

REACTIONS (9)
  - Muscular weakness [None]
  - Eructation [Unknown]
  - Impulsive behaviour [Unknown]
  - Acute kidney injury [Unknown]
  - Abdominal pain upper [None]
  - Urosepsis [Unknown]
  - Interstitial lung disease [Unknown]
  - Cognitive disorder [None]
  - Hiccups [Unknown]
